FAERS Safety Report 6497223-7 (Version None)
Quarter: 2009Q4

REPORT INFORMATION
  Report Type: 
  Country: None (occurrence: None)
  Receive Date: 20091215
  Receipt Date: 20090629
  Transmission Date: 20100525
  Serious: No
  Sender: FDA-Public Use
  Company Number: A0794317A

PATIENT
  Age: 87 Year
  Sex: Male

DRUGS (7)
  1. AVODART [Suspect]
     Indication: URINE FLOW DECREASED
     Dosage: .5MG PER DAY
     Route: 048
     Dates: start: 20081201
  2. COZAAR [Concomitant]
  3. ZOCOR [Concomitant]
  4. ASPIRIN [Concomitant]
  5. MULTI-VITAMIN [Concomitant]
  6. VITAMIN B COMPLEX CAP [Concomitant]
  7. ATENOLOL [Concomitant]

REACTIONS (3)
  - POLLAKIURIA [None]
  - THERAPEUTIC RESPONSE DECREASED [None]
  - URINE FLOW DECREASED [None]
